FAERS Safety Report 23823991 (Version 1)
Quarter: 2024Q2

REPORT INFORMATION
  Report Type: Spontaneous
  Country: US (occurrence: US)
  Receive Date: 20240507
  Receipt Date: 20240507
  Transmission Date: 20240716
  Serious: No
  Sender: FDA-Public Use
  Company Number: US-UCBSA-2023052559

PATIENT
  Sex: Female

DRUGS (1)
  1. CIMZIA [Suspect]
     Active Substance: CERTOLIZUMAB PEGOL
     Indication: Rheumatoid arthritis
     Dosage: UNK, EVERY 2 WEEKS
     Dates: start: 202206

REACTIONS (5)
  - Pain [Unknown]
  - Discomfort [Unknown]
  - Inability to afford medication [Unknown]
  - Therapeutic product effect delayed [Unknown]
  - Insurance issue [Unknown]
